FAERS Safety Report 22171148 (Version 1)
Quarter: 2023Q2

REPORT INFORMATION
  Report Type: Spontaneous
  Country: US (occurrence: US)
  Receive Date: 20230404
  Receipt Date: 20230404
  Transmission Date: 20230721
  Serious: Yes (Other)
  Sender: FDA-Public Use
  Company Number: US-GLENMARK PHARMACEUTICALS-2023GMK080758

PATIENT

DRUGS (2)
  1. CARVEDILOL [Suspect]
     Active Substance: CARVEDILOL
     Indication: Product used for unknown indication
     Dosage: UNK
     Route: 048
     Dates: start: 202110
  2. LISINOPRIL [Concomitant]
     Active Substance: LISINOPRIL
     Indication: Product used for unknown indication
     Dosage: UNK, NON-GLENMARK, MANUFACTURER: SOLCO HEAL
     Route: 065

REACTIONS (8)
  - Implantable defibrillator insertion [Unknown]
  - Sneezing [Unknown]
  - Anxiety [Unknown]
  - Impaired driving ability [Unknown]
  - Blood urine present [Unknown]
  - Blood pressure increased [Unknown]
  - Dyspnoea [Unknown]
  - Somnolence [Unknown]
